FAERS Safety Report 19792772 (Version 1)
Quarter: 2021Q3

REPORT INFORMATION
  Report Type: Other
  Country: ZA (occurrence: ZA)
  Receive Date: 20210906
  Receipt Date: 20210906
  Transmission Date: 20211014
  Serious: Yes (Life-Threatening)
  Sender: FDA-Public Use
  Company Number: ZA-ROCHE-2903558

PATIENT
  Sex: Female

DRUGS (11)
  1. NURIKA [Concomitant]
  2. ACTEMRA [Suspect]
     Active Substance: TOCILIZUMAB
     Indication: RHEUMATOID ARTHRITIS
     Route: 058
     Dates: start: 20210804
  3. CARVEDILOL. [Concomitant]
     Active Substance: CARVEDILOL
  4. TEGRETOL XR [Concomitant]
     Active Substance: CARBAMAZEPINE
     Dosage: 400
  5. DOPAQUEL [Concomitant]
     Active Substance: QUETIAPINE
  6. TEGRETOL XR [Concomitant]
     Active Substance: CARBAMAZEPINE
     Dosage: 200
  7. RIVOTRIL [Concomitant]
     Active Substance: CLONAZEPAM
  8. UNAT [Concomitant]
     Active Substance: TORSEMIDE
  9. SPIRACTIN (SOUTH AFRICA) [Concomitant]
  10. FORXIGA [Concomitant]
     Active Substance: DAPAGLIFLOZIN
  11. ENTRESTO [Concomitant]
     Active Substance: SACUBITRIL\VALSARTAN

REACTIONS (1)
  - Suicide attempt [Unknown]
